FAERS Safety Report 5285683-9 (Version None)
Quarter: 2007Q1

REPORT INFORMATION
  Report Type: 
  Country: None (occurrence: None)
  Receive Date: 20070126
  Receipt Date: 20050830
  Transmission Date: 20070707
  Serious: No
  Sender: FDA-Public Use
  Company Number: 2006CT001161

PATIENT
  Age: 68 Year
  Sex: Female
  Weight: 87 kg

DRUGS (14)
  1. VENTAVIS [Suspect]
     Indication: PULMONARY HYPERTENSION
     Dosage: 5 UG;6XD;INH
     Route: 055
     Dates: start: 20050718, end: 20050801
  2. ALDACTONE [Concomitant]
  3. THIAMINE HCL [Concomitant]
  4. CALTRATE +D [Concomitant]
  5. CARTIA XT [Concomitant]
  6. COZAAR [Concomitant]
  7. FUROSEMIDE [Concomitant]
  8. GLYBURIDE [Concomitant]
  9. MAGNESIUM OXIDE [Concomitant]
  10. VITAMIN CAP [Concomitant]
  11. NOVOLIN N [Concomitant]
  12. NOVOLIN R [Concomitant]
  13. PROPRANOLOL [Concomitant]
  14. SYNTHROID [Concomitant]

REACTIONS (2)
  - FATIGUE [None]
  - NO THERAPEUTIC RESPONSE [None]
